FAERS Safety Report 21019952 (Version 2)
Quarter: 2022Q3

REPORT INFORMATION
  Report Type: Report from Study
  Country: CA (occurrence: CA)
  Receive Date: 20220628
  Receipt Date: 20220914
  Transmission Date: 20221026
  Serious: Yes (Other)
  Sender: FDA-Public Use
  Company Number: CA-BRISTOL-MYERS SQUIBB COMPANY-2022-061544

PATIENT
  Age: 59 Year
  Sex: Female
  Weight: 49.1 kg

DRUGS (1)
  1. OPDIVO [Suspect]
     Active Substance: NIVOLUMAB
     Indication: Gastric cancer
     Route: 042
     Dates: start: 20220309

REACTIONS (8)
  - Ascites [Recovering/Resolving]
  - Gait disturbance [Unknown]
  - Muscular weakness [Unknown]
  - Fall [Unknown]
  - Skin discolouration [Recovering/Resolving]
  - Decreased appetite [Unknown]
  - Urine odour abnormal [Unknown]
  - Dysuria [Unknown]

NARRATIVE: CASE EVENT DATE: 20220601
